FAERS Safety Report 21392357 (Version 2)
Quarter: 2022Q4

REPORT INFORMATION
  Report Type: Spontaneous
  Country: US (occurrence: US)
  Receive Date: 20220929
  Receipt Date: 20221012
  Transmission Date: 20230113
  Serious: No
  Sender: FDA-Public Use
  Company Number: US-JNJFOC-20220939167

PATIENT
  Sex: Female

DRUGS (1)
  1. IMODIUM A-D [Suspect]
     Active Substance: LOPERAMIDE HYDROCHLORIDE
     Indication: Diarrhoea
     Dosage: JUST ENOUGH. TWICE A DAY?PRODUCT START DATE: MAY BE 1 WEEK AGO. PATIENT CAN^T REMEMBER
     Route: 065

REACTIONS (1)
  - Drug ineffective [Unknown]
